FAERS Safety Report 8458848-2 (Version None)
Quarter: 2012Q2

REPORT INFORMATION
  Report Type: 
  Country: None (occurrence: None)
  Receive Date: 20120622
  Receipt Date: 20120611
  Transmission Date: 20120825
  Serious: Yes (Hospitalization, Other)
  Sender: FDA-Public Use
  Company Number: US-ELI_LILLY_AND_COMPANY-US201206004086

PATIENT
  Age: 56 Year
  Sex: Female

DRUGS (6)
  1. PLAVIX [Concomitant]
  2. FLEXERIL [Concomitant]
  3. HYDROCODONE [Concomitant]
  4. CYMBALTA [Suspect]
     Indication: NEUROPATHY PERIPHERAL
     Dosage: 60 MG, QD
     Dates: end: 20120301
  5. MS CONTIN [Concomitant]
  6. VYTORIN [Concomitant]

REACTIONS (16)
  - INTERVERTEBRAL DISC PROTRUSION [None]
  - POST PROCEDURAL INFECTION [None]
  - LIBIDO INCREASED [None]
  - ROAD TRAFFIC ACCIDENT [None]
  - NECK INJURY [None]
  - CONSTIPATION [None]
  - VOMITING [None]
  - OFF LABEL USE [None]
  - SURGERY [None]
  - BACK DISORDER [None]
  - NEURALGIA [None]
  - ABASIA [None]
  - PAIN [None]
  - DRUG WITHDRAWAL SYNDROME [None]
  - PARAESTHESIA [None]
  - NAUSEA [None]
